FAERS Safety Report 20511338 (Version 1)
Quarter: 2022Q1

REPORT INFORMATION
  Report Type: Spontaneous
  Country: US (occurrence: None)
  Receive Date: 20220223
  Receipt Date: 20220223
  Transmission Date: 20220423
  Serious: Yes (Other)
  Sender: FDA-Public Use
  Company Number: None

PATIENT
  Age: 25 Year
  Sex: Male
  Weight: 121.5 kg

DRUGS (1)
  1. LEVOFLOXACIN [Suspect]
     Active Substance: LEVOFLOXACIN
     Indication: Infection
     Dosage: OTHER QUANTITY : 5 CAPSULE(S);?
     Route: 048
     Dates: start: 20220221, end: 20220221

REACTIONS (7)
  - Dizziness [None]
  - Paraesthesia [None]
  - Depressed mood [None]
  - Crying [None]
  - Depressed level of consciousness [None]
  - Confusional state [None]
  - Nerve injury [None]

NARRATIVE: CASE EVENT DATE: 20220221
